FAERS Safety Report 8262723-6 (Version None)
Quarter: 2012Q2

REPORT INFORMATION
  Report Type: 
  Country: None (occurrence: None)
  Receive Date: 20120405
  Receipt Date: 20120326
  Transmission Date: 20120825
  Serious: Yes (Hospitalization)
  Sender: FDA-Public Use
  Company Number: AU-ABBOTT-12P-008-0918736-01

PATIENT
  Sex: Male

DRUGS (13)
  1. PREDNISOLONE [Concomitant]
     Dosage: VARIABLE
     Dates: start: 20100206, end: 20110302
  2. METHOTREXATE [Concomitant]
     Indication: CROHN'S DISEASE
     Dates: start: 20090923, end: 20091116
  3. METHOTREXATE [Concomitant]
     Dates: start: 20091116, end: 20091202
  4. METHOTREXATE [Concomitant]
     Dates: start: 20100407, end: 20100615
  5. PREDNISOLONE [Concomitant]
     Indication: CROHN'S DISEASE
     Dates: start: 20090910, end: 20091101
  6. HUMIRA [Suspect]
     Dates: end: 20090910
  7. VEDOLIZUMAB/PLACEBO [Concomitant]
     Indication: CROHN'S DISEASE
     Dates: start: 20091224, end: 20100119
  8. PURINETHOL [Concomitant]
     Indication: CROHN'S DISEASE
     Dates: start: 20100206, end: 20100407
  9. HUMIRA [Suspect]
     Indication: CROHN'S DISEASE
     Route: 058
     Dates: start: 20090622, end: 20090622
  10. METHOTREXATE [Concomitant]
     Dates: start: 20100616, end: 20100727
  11. METHOTREXATE [Concomitant]
     Dates: start: 20100728
  12. HUMIRA [Suspect]
     Dosage: WEEK 2
  13. METHOTREXATE [Concomitant]
     Dates: start: 20100316, end: 20100406

REACTIONS (1)
  - CROHN'S DISEASE [None]
